FAERS Safety Report 6734039-8 (Version None)
Quarter: 2010Q2

REPORT INFORMATION
  Report Type: 
  Country: None (occurrence: None)
  Receive Date: 20100520
  Receipt Date: 20100514
  Transmission Date: 20101027
  Serious: Yes (Other)
  Sender: FDA-Public Use
  Company Number: US-ELI_LILLY_AND_COMPANY-US201005004226

PATIENT
  Sex: Female

DRUGS (2)
  1. HUMALOG [Suspect]
  2. HUMALOG [Suspect]

REACTIONS (2)
  - DIALYSIS [None]
  - LIMB OPERATION [None]
